FAERS Safety Report 11325507 (Version 1)
Quarter: 2015Q3

REPORT INFORMATION
  Report Type: Spontaneous
  Country: US (occurrence: US)
  Receive Date: 20150731
  Receipt Date: 20150731
  Transmission Date: 20151125
  Serious: Yes (Other)
  Sender: FDA-Public Use
  Company Number: US-JNJFOC-20150718114

PATIENT
  Sex: Male

DRUGS (2)
  1. IMODIUM A-D [Suspect]
     Active Substance: LOPERAMIDE HYDROCHLORIDE
     Route: 048
  2. IMODIUM A-D [Suspect]
     Active Substance: LOPERAMIDE HYDROCHLORIDE
     Indication: DRUG DEPENDENCE
     Route: 048

REACTIONS (6)
  - Off label use [Unknown]
  - Arrhythmia [Unknown]
  - Faecaloma [Unknown]
  - Product quality issue [None]
  - Drug abuse [Unknown]
  - Intentional overdose [Unknown]
